FAERS Safety Report 8216414-8 (Version None)
Quarter: 2012Q1

REPORT INFORMATION
  Report Type: 
  Country: None (occurrence: None)
  Receive Date: 20120316
  Receipt Date: 20120313
  Transmission Date: 20120608
  Serious: Yes (Other)
  Sender: FDA-Public Use
  Company Number: PHHY2012BR022614

PATIENT
  Sex: Female

DRUGS (2)
  1. ATENOLOL [Concomitant]
     Indication: HEART RATE IRREGULAR
     Dosage: 50 MG, QD
     Route: 048
     Dates: start: 20100101
  2. DIOVAN HCT [Suspect]
     Indication: HYPERTENSION
     Dosage: 160 MG VALSARTAN AND 25 MG HCT
     Route: 048
     Dates: start: 20040101

REACTIONS (4)
  - OSTEOPOROSIS [None]
  - OSTEOARTHRITIS [None]
  - RENAL CYST [None]
  - BREAST CANCER [None]
